FAERS Safety Report 24727640 (Version 1)
Quarter: 2024Q4

REPORT INFORMATION
  Report Type: Spontaneous
  Country: US (occurrence: US)
  Receive Date: 20241212
  Receipt Date: 20241212
  Transmission Date: 20250115
  Serious: Yes (Other)
  Sender: NOVO NORDISK
  Company Number: US-NOVOPROD-1317312

PATIENT
  Age: 68 Year
  Sex: Female

DRUGS (2)
  1. NOVOLOG [Suspect]
     Active Substance: INSULIN ASPART
     Indication: Product used for unknown indication
     Dosage: SLIDING SCALE
     Route: 058
     Dates: start: 201601
  2. LEVEMIR [Suspect]
     Active Substance: INSULIN DETEMIR
     Indication: Product used for unknown indication
     Dosage: 30 UNITS QD
     Route: 058
     Dates: start: 201601

REACTIONS (4)
  - Myocardial infarction [Unknown]
  - Hepatic cirrhosis [Unknown]
  - Cataract [Unknown]
  - Visual impairment [Unknown]
